FAERS Safety Report 9833163 (Version 1)
Quarter: 2014Q1

REPORT INFORMATION
  Report Type: Spontaneous
  Country: US (occurrence: US)
  Receive Date: 20140121
  Receipt Date: 20140121
  Transmission Date: 20141002
  Serious: No
  Sender: FDA-Public Use
  Company Number: US-BAUSCH-BL-2013-000335

PATIENT
  Age: 4 Year
  Sex: Female

DRUGS (2)
  1. ALAWAY [Suspect]
     Indication: EYE PRURITUS
     Dosage: 1 TO 2 DROPS IN EACH EYE; ONCE DAILY; OPTHALMIC
     Route: 047
     Dates: start: 20130121
  2. ALAWAY (KETOTIFEN FUMARATE OPHTHALMIC SOLUTION) [Suspect]
     Indication: ALLERGY TO ANIMAL

REACTIONS (2)
  - Eye swelling [Recovering/Resolving]
  - Eyelid oedema [Recovering/Resolving]
